FAERS Safety Report 13164929 (Version 1)
Quarter: 2017Q1

REPORT INFORMATION
  Report Type: Spontaneous
  Country: US (occurrence: US)
  Receive Date: 20170130
  Receipt Date: 20170130
  Transmission Date: 20170428
  Serious: No
  Sender: FDA-Public Use
  Company Number: US-ACTELION-A-NJ2017-149123

PATIENT
  Age: 17 Year
  Sex: Female

DRUGS (15)
  1. GABAPENTIN. [Concomitant]
     Active Substance: GABAPENTIN
     Dosage: 100 MG, PRN
     Dates: start: 20151106
  2. CENTRUM [Concomitant]
     Active Substance: VITAMINS
     Dosage: 0.5 UNK, QD
     Dates: start: 20161007
  3. OMEPRAZOLE. [Concomitant]
     Active Substance: OMEPRAZOLE
     Dosage: 20 MG, QD
     Dates: start: 20161007
  4. TRANSDERM SCOP [Concomitant]
     Active Substance: SCOPOLAMINE
     Dosage: 1 PATCH TOPICALLY EVERY 3 DAYS
     Dates: start: 20161007
  5. CULTURELLE [Concomitant]
     Active Substance: LACTOBACILLUS RHAMNOSUS
     Dosage: UNK, QD
     Dates: start: 20161007
  6. TRILEPTAL [Concomitant]
     Active Substance: OXCARBAZEPINE
     Dosage: 600 MG, QD
     Dates: start: 20161007
  7. ZANTAC [Concomitant]
     Active Substance: RANITIDINE HYDROCHLORIDE
     Dosage: 150 MG, BID
     Dates: start: 20161007
  8. GLYCOPYRROLATE. [Concomitant]
     Active Substance: GLYCOPYRROLATE
     Dosage: 7.5 ML, QID
     Dates: start: 20161007
  9. MIRALAX [Concomitant]
     Active Substance: POLYETHYLENE GLYCOL 3350
     Dosage: 17 MG, QD
     Dates: start: 20161007
  10. PROBIOTIC [Concomitant]
     Active Substance: PROBIOTICS NOS
     Dosage: 250 MG, QD
     Dates: start: 20161007
  11. B COMPLETE [Concomitant]
     Dosage: UNK, QD
     Dates: start: 20161007
  12. ONFI [Concomitant]
     Active Substance: CLOBAZAM
     Dosage: 30 MG, BEDTIME
     Dates: start: 20161007
  13. ZAVESCA [Suspect]
     Active Substance: MIGLUSTAT
     Indication: GAUCHER^S DISEASE
     Dosage: 100 MG, TID
     Route: 048
     Dates: start: 20120104
  14. KEPPRA [Concomitant]
     Active Substance: LEVETIRACETAM
     Dosage: 500 MG, QD
     Dates: start: 20161007
  15. VIMPAT [Concomitant]
     Active Substance: LACOSAMIDE
     Dosage: 100 MG, BID
     Dates: start: 20161007

REACTIONS (1)
  - Urinary tract infection [Unknown]
